FAERS Safety Report 15742893 (Version 1)
Quarter: 2018Q4

REPORT INFORMATION
  Report Type: Spontaneous
  Country: PE (occurrence: PE)
  Receive Date: 20181219
  Receipt Date: 20181219
  Transmission Date: 20190205
  Serious: Yes (Other)
  Sender: FDA-Public Use
  Company Number: PE-UCBSA-2018054240

PATIENT
  Age: 42 Year
  Sex: Female
  Weight: 65 kg

DRUGS (3)
  1. CIMZIA [Suspect]
     Active Substance: CERTOLIZUMAB PEGOL
     Indication: SPONDYLOARTHROPATHY
     Dosage: 200 MG, EV 15 DAYS
     Route: 058
     Dates: start: 2017
  2. SULFAMETHOXAZOLE [Concomitant]
     Active Substance: SULFAMETHOXAZOLE
     Indication: GASTROENTERITIS
     Dosage: 800 MG, 2X/DAY (BID)
     Route: 048
     Dates: start: 20181118, end: 20181121
  3. TRIMETHOPRIM. [Concomitant]
     Active Substance: TRIMETHOPRIM
     Indication: GASTROENTERITIS
     Dosage: 160 MG, 2X/DAY (BID)
     Route: 048
     Dates: start: 20181118, end: 20181121

REACTIONS (2)
  - Erythema [Recovered/Resolved]
  - Gastroenteritis [Recovered/Resolved]

NARRATIVE: CASE EVENT DATE: 20181116
